FAERS Safety Report 9275878 (Version 1)
Quarter: 2013Q2

REPORT INFORMATION
  Report Type: Spontaneous
  Country: KR (occurrence: KR)
  Receive Date: 20130507
  Receipt Date: 20130507
  Transmission Date: 20140414
  Serious: Yes (Other)
  Sender: FDA-Public Use
  Company Number: KR-JNJFOC-20130416227

PATIENT
  Age: 5 Year
  Sex: 0

DRUGS (1)
  1. CHILDREN^S TYLENOL [Suspect]
     Indication: ANTIPYRESIS
     Route: 048

REACTIONS (7)
  - Liver disorder [Unknown]
  - Decreased immune responsiveness [Unknown]
  - Developmental delay [Unknown]
  - Respiration abnormal [Unknown]
  - Asthenia [Unknown]
  - Growth retardation [None]
  - Asthenia [None]
